FAERS Safety Report 10469770 (Version 2)
Quarter: 2014Q4

REPORT INFORMATION
  Report Type: Spontaneous
  Country: GB (occurrence: GB)
  Receive Date: 20140923
  Receipt Date: 20141015
  Transmission Date: 20150528
  Serious: Yes (Other)
  Sender: FDA-Public Use
  Company Number: GB-SA-2014SA130903

PATIENT
  Age: 10 Year
  Sex: Female

DRUGS (2)
  1. DDAVP [Suspect]
     Active Substance: DESMOPRESSIN ACETATE
     Indication: ENURESIS
     Route: 048
     Dates: start: 20121012, end: 20140609
  2. NASEPTIN [Concomitant]
     Indication: EPISTAXIS

REACTIONS (2)
  - Epistaxis [Recovered/Resolved]
  - Menorrhagia [Recovered/Resolved]
